FAERS Safety Report 21486702 (Version 1)
Quarter: 2022Q4

REPORT INFORMATION
  Report Type: Spontaneous
  Country: US (occurrence: US)
  Receive Date: 20221020
  Receipt Date: 20221020
  Transmission Date: 20230113
  Serious: No
  Sender: FDA-Public Use
  Company Number: US-TAKEDA-2022TUS075159

PATIENT

DRUGS (2)
  1. MOTEGRITY [Suspect]
     Active Substance: PRUCALOPRIDE SUCCINATE
     Indication: Oesophageal motility disorder
     Route: 065
  2. MOTEGRITY [Suspect]
     Active Substance: PRUCALOPRIDE SUCCINATE
     Indication: Impaired gastric emptying

REACTIONS (2)
  - Product use in unapproved indication [Unknown]
  - No adverse event [Unknown]
